FAERS Safety Report 14928456 (Version 1)
Quarter: 2018Q2

REPORT INFORMATION
  Report Type: Spontaneous
  Country: CA (occurrence: CA)
  Receive Date: 20180523
  Receipt Date: 20180523
  Transmission Date: 20180711
  Serious: No
  Sender: FDA-Public Use
  Company Number: CA-FDC LIMITED-2017RIS00368

PATIENT
  Age: 69 Year
  Sex: Female

DRUGS (5)
  1. TIMOLOL MALEATE. [Suspect]
     Active Substance: TIMOLOL MALEATE
     Indication: GLAUCOMA
  2. TIMOLOL MALEATE. [Suspect]
     Active Substance: TIMOLOL MALEATE
     Indication: CATARACT
     Dosage: 1 DROP PER EYE, 2X/DAY
     Route: 047
     Dates: start: 2017
  3. PREDNISOLONE. [Concomitant]
     Active Substance: PREDNISOLONE
  4. DORZOLAMIDE [Concomitant]
     Active Substance: DORZOLAMIDE
  5. LATANOPROST. [Concomitant]
     Active Substance: LATANOPROST

REACTIONS (2)
  - Rhinorrhoea [Not Recovered/Not Resolved]
  - Sneezing [Not Recovered/Not Resolved]

NARRATIVE: CASE EVENT DATE: 201710
